FAERS Safety Report 8609961-8 (Version None)
Quarter: 2012Q3

REPORT INFORMATION
  Report Type: 
  Country: None (occurrence: None)
  Receive Date: 20120821
  Receipt Date: 20100919
  Transmission Date: 20120928
  Serious: Yes (Hospitalization)
  Sender: FDA-Public Use
  Company Number: US-ELI_LILLY_AND_COMPANY-US201009005208

PATIENT
  Sex: Male
  Weight: 106.58 kg

DRUGS (1)
  1. PRASUGREL HYDROCHLORIDE [Suspect]
     Dates: start: 20100809

REACTIONS (1)
  - CHEST PAIN [None]
